FAERS Safety Report 12380981 (Version 1)
Quarter: 2016Q2

REPORT INFORMATION
  Report Type: Spontaneous
  Country: US (occurrence: None)
  Receive Date: 20160517
  Receipt Date: 20160517
  Transmission Date: 20160815
  Serious: No
  Sender: FDA-Public Use
  Company Number: None

PATIENT
  Age: 64 Year
  Sex: Female
  Weight: 61.69 kg

DRUGS (7)
  1. SIMVASTATIN. [Concomitant]
     Active Substance: SIMVASTATIN
  2. LEVOTHYROXINE. [Concomitant]
     Active Substance: LEVOTHYROXINE
  3. TYLENOL [Concomitant]
     Active Substance: ACETAMINOPHEN
  4. LISINOPRIL. [Suspect]
     Active Substance: LISINOPRIL
  5. HYDROCHLOROTHIAZIDE. [Suspect]
     Active Substance: HYDROCHLOROTHIAZIDE
     Indication: HYPERTENSION
  6. CULTURELLE [Concomitant]
     Active Substance: LACTOBACILLUS RHAMNOSUS
  7. LOSARTAN. [Suspect]
     Active Substance: LOSARTAN

REACTIONS (8)
  - Tinnitus [None]
  - Feeling abnormal [None]
  - Throat tightness [None]
  - Hypoaesthesia [None]
  - Dizziness [None]
  - Joint swelling [None]
  - Vertigo [None]
  - Peripheral swelling [None]

NARRATIVE: CASE EVENT DATE: 20150625
